FAERS Safety Report 10884395 (Version 1)
Quarter: 2015Q1

REPORT INFORMATION
  Report Type: Spontaneous
  Country: US (occurrence: None)
  Receive Date: 20150226
  Receipt Date: 20150226
  Transmission Date: 20150721
  Serious: No
  Sender: FDA-Public Use
  Company Number: None

PATIENT
  Sex: Female

DRUGS (5)
  1. CALCIUM 500 [Concomitant]
  2. PRACTI-PRODUCTS [Suspect]
     Active Substance: UNSPECIFIED INGREDIENT
     Route: 042
  3. RECLAST [Suspect]
     Active Substance: ZOLEDRONIC ACID
  4. LIPITOR [Concomitant]
     Active Substance: ATORVASTATIN CALCIUM
  5. NIACIN. [Concomitant]
     Active Substance: NIACIN

REACTIONS (2)
  - Vomiting [None]
  - Pain in extremity [None]

NARRATIVE: CASE EVENT DATE: 20141114
